FAERS Safety Report 6972891-1 (Version None)
Quarter: 2010Q3

REPORT INFORMATION
  Report Type: 
  Country: None (occurrence: None)
  Receive Date: 20100909
  Receipt Date: 20100831
  Transmission Date: 20110219
  Serious: Yes (Other)
  Sender: FDA-Public Use
  Company Number: US-PFIZER INC-2010110574

PATIENT

DRUGS (2)
  1. CELEBREX [Suspect]
     Dosage: 100 MG, 2X/DAY
     Route: 048
  2. IBUPROFEN [Concomitant]
     Indication: PAIN
     Dosage: UNK

REACTIONS (3)
  - BLOOD DISORDER [None]
  - HAEMATOMA [None]
  - OEDEMA PERIPHERAL [None]
